FAERS Safety Report 15070185 (Version 1)
Quarter: 2018Q2

REPORT INFORMATION
  Report Type: Spontaneous
  Country: FR (occurrence: FR)
  Receive Date: 20180626
  Receipt Date: 20180626
  Transmission Date: 20180711
  Serious: Yes (Hospitalization)
  Sender: FDA-Public Use
  Company Number: FR-PFIZER INC-2018255970

PATIENT
  Age: 60 Year
  Sex: Female

DRUGS (3)
  1. BACTRIM [Suspect]
     Active Substance: SULFAMETHOXAZOLE\TRIMETHOPRIM
     Indication: CYSTITIS
     Route: 048
     Dates: start: 20170323, end: 20170331
  2. STRESAM [Suspect]
     Active Substance: ETIFOXINE
     Indication: ANXIETY
     Route: 048
     Dates: start: 20170327, end: 20170331
  3. IBUPROFEN. [Suspect]
     Active Substance: IBUPROFEN
     Indication: HEADACHE
     Route: 048
     Dates: start: 20170329, end: 20170331

REACTIONS (3)
  - Purpura [Recovered/Resolved]
  - Dermo-hypodermitis [Recovered/Resolved]
  - Rash [Recovered/Resolved]

NARRATIVE: CASE EVENT DATE: 20170401
